FAERS Safety Report 21517151 (Version 1)
Quarter: 2022Q4

REPORT INFORMATION
  Report Type: Spontaneous
  Country: DE (occurrence: DE)
  Receive Date: 20221028
  Receipt Date: 20221028
  Transmission Date: 20230113
  Serious: Yes (Other)
  Sender: FDA-Public Use
  Company Number: DE-BRISTOL-MYERS SQUIBB COMPANY-2022-126169

PATIENT
  Age: 68 Year
  Sex: Male

DRUGS (2)
  1. OPDIVO [Suspect]
     Active Substance: NIVOLUMAB
     Indication: Malignant melanoma
     Dosage: UNKNOWN
     Route: 065
     Dates: start: 202008
  2. YERVOY [Suspect]
     Active Substance: IPILIMUMAB
     Indication: Malignant melanoma
     Dosage: UNKNOWN
     Route: 065

REACTIONS (5)
  - Diarrhoea haemorrhagic [Unknown]
  - Lower gastrointestinal haemorrhage [Unknown]
  - Haemorrhoids thrombosed [Unknown]
  - Gastrointestinal ulcer [Unknown]
  - Colitis [Unknown]

NARRATIVE: CASE EVENT DATE: 20200101
